FAERS Safety Report 18388749 (Version 3)
Quarter: 2020Q4

REPORT INFORMATION
  Report Type: Spontaneous
  Country: DE (occurrence: DE)
  Receive Date: 20201015
  Receipt Date: 20201105
  Transmission Date: 20210114
  Serious: Yes (Hospitalization)
  Sender: FDA-Public Use
  Company Number: DE-DSJP-DSE-2020-129639

PATIENT
  Sex: Female

DRUGS (3)
  1. OLMETEC [Suspect]
     Active Substance: OLMESARTAN MEDOXOMIL
     Indication: BLOOD PRESSURE ABNORMAL
     Dosage: 30 MG (10 MG+ 20MG) OF OLMETEC (ORIGINAL), QD
     Route: 048
     Dates: end: 202009
  2. OLMETEC [Suspect]
     Active Substance: OLMESARTAN MEDOXOMIL
     Dosage: 30 MG (10 MG+ 20MG) OF OLMETEC (ORIGINAL), QD
     Route: 048
     Dates: start: 202010
  3. OLMETEC [Suspect]
     Active Substance: OLMESARTAN MEDOXOMIL
     Dosage: 30 MG (10 MG+ 20MG) OF OLMETEC (IMPORT), QD
     Route: 048
     Dates: start: 202009, end: 202010

REACTIONS (5)
  - Hypertension [Recovered/Resolved]
  - Headache [Recovering/Resolving]
  - Anxiety [Recovering/Resolving]
  - Drug ineffective [Recovered/Resolved]
  - Suspected counterfeit product [Unknown]

NARRATIVE: CASE EVENT DATE: 202009
